FAERS Safety Report 4698257-5 (Version None)
Quarter: 2005Q2

REPORT INFORMATION
  Report Type: 
  Country: None (occurrence: None)
  Receive Date: 20050621
  Receipt Date: 20050602
  Transmission Date: 20051028
  Serious: Yes (Other)
  Sender: FDA-Public Use
  Company Number: TRP_0143_2005

PATIENT
  Age: 44 Year
  Sex: Male
  Weight: 129.7287 kg

DRUGS (3)
  1. RIBASPHERE [Suspect]
     Indication: HEPATITIS C
     Dosage: DF PO
     Route: 048
     Dates: start: 20041110
  2. PEG-INTRON/PEGINTERFERON ALFA-2B/SCHERING-POUGH/REDIPEN [Suspect]
     Indication: HEPATITIS C
     Dosage: DF SC
     Route: 058
     Dates: start: 20041110
  3. LISINOPRIL [Concomitant]

REACTIONS (1)
  - VARICOSE VEIN [None]
